FAERS Safety Report 5039394-5 (Version None)
Quarter: 2006Q2

REPORT INFORMATION
  Report Type: 
  Country: None (occurrence: None)
  Receive Date: 20060629
  Receipt Date: 20060619
  Transmission Date: 20061013
  Serious: Yes (Other)
  Sender: FDA-Public Use
  Company Number: US-BRISTOL-MYERS SQUIBB COMPANY-13416078

PATIENT
  Age: 52 Year
  Sex: Female

DRUGS (2)
  1. CARBOPLATIN [Suspect]
     Indication: OVARIAN CANCER
  2. PACLITAXEL [Suspect]
     Indication: OVARIAN CANCER

REACTIONS (2)
  - ACUTE MYELOID LEUKAEMIA [None]
  - TREATMENT RELATED SECONDARY MALIGNANCY [None]
